FAERS Safety Report 14273073 (Version 1)
Quarter: 2017Q4

REPORT INFORMATION
  Report Type: Spontaneous
  Country: US (occurrence: US)
  Receive Date: 20171211
  Receipt Date: 20171211
  Transmission Date: 20180321
  Serious: Yes (Other)
  Sender: FDA-Public Use
  Company Number: US-OTSUKA-2017_019168

PATIENT
  Sex: Female

DRUGS (1)
  1. ABILIFY [Suspect]
     Active Substance: ARIPIPRAZOLE
     Indication: MAJOR DEPRESSION
     Dosage: 2 MG, QD (AUGMENTATION WITH SSRI)
     Route: 065
     Dates: start: 200712, end: 201401

REACTIONS (6)
  - Eating disorder [Recovered/Resolved]
  - Injury [Unknown]
  - Mental disorder [Unknown]
  - Gambling [Recovered/Resolved]
  - Emotional distress [Unknown]
  - Brain injury [Unknown]
